FAERS Safety Report 7405603-8 (Version None)
Quarter: 2011Q2

REPORT INFORMATION
  Report Type: 
  Country: None (occurrence: None)
  Receive Date: 20110411
  Receipt Date: 20110401
  Transmission Date: 20111010
  Serious: Yes (Hospitalization, Other)
  Sender: FDA-Public Use
  Company Number: PHHY2010US25187

PATIENT
  Sex: Female

DRUGS (10)
  1. CITALOPRAM [Concomitant]
     Dosage: 20 MG, QD
  2. EXTAVIA [Suspect]
     Indication: MULTIPLE SCLEROSIS
     Dosage: 0.25 MG, QOD
     Route: 058
     Dates: start: 20100208
  3. HYDROCODONE BITARTRATE [Concomitant]
     Dosage: 500 MG, BID
  4. HYDROCODONE BITARTRATE [Concomitant]
     Dosage: 7.5/500 Q6H
  5. TIZANIDINE [Concomitant]
     Dosage: 4 MG, TID
  6. DIPHENHYDRAMINE HCL [Concomitant]
     Dosage: 25 MG, BID
  7. VITAMIN D [Concomitant]
     Dosage: 1000 IU, BID
  8. CYMBALTA [Concomitant]
     Dosage: 30 MG, BID
  9. VITAMIN D [Concomitant]
     Dosage: 1 DF, QD
  10. GABAPENTIN [Concomitant]
     Dosage: 300 MG, TID

REACTIONS (17)
  - CARTILAGE INJURY [None]
  - BONE CYST [None]
  - WEIGHT INCREASED [None]
  - CEREBROVASCULAR ACCIDENT [None]
  - INJECTION SITE CYST [None]
  - HEADACHE [None]
  - MUSCULAR WEAKNESS [None]
  - BONE DISORDER [None]
  - JOINT STIFFNESS [None]
  - FACIAL NERVE DISORDER [None]
  - INJECTION SITE PRURITUS [None]
  - FALL [None]
  - VISION BLURRED [None]
  - SWELLING FACE [None]
  - FACIAL PAIN [None]
  - INJECTION SITE SWELLING [None]
  - INJECTION SITE ERYTHEMA [None]
